FAERS Safety Report 5943144-5 (Version None)
Quarter: 2008Q4

REPORT INFORMATION
  Report Type: 
  Country: None (occurrence: None)
  Receive Date: 20081105
  Receipt Date: 20081105
  Transmission Date: 20090506
  Serious: Yes (Other)
  Sender: FDA-Public Use
  Company Number: None

PATIENT
  Age: 73 Year
  Sex: Female
  Weight: 59.8748 kg

DRUGS (2)
  1. FLEXERIL [Suspect]
     Indication: SCIATICA
  2. TRAMADOL HCL [Suspect]

REACTIONS (6)
  - ASTHENIA [None]
  - BLOOD URINE PRESENT [None]
  - DISORIENTATION [None]
  - DIZZINESS [None]
  - MALAISE [None]
  - NAUSEA [None]
